FAERS Safety Report 5792501-9 (Version None)
Quarter: 2008Q2

REPORT INFORMATION
  Report Type: 
  Country: None (occurrence: None)
  Receive Date: 20080626
  Receipt Date: 20080619
  Transmission Date: 20081010
  Serious: Yes (Hospitalization)
  Sender: FDA-Public Use
  Company Number: ES-MERCK-0806ESP00032

PATIENT
  Age: 74 Year
  Sex: Female

DRUGS (7)
  1. TIMOPTIC [Suspect]
     Indication: GLAUCOMA
     Route: 047
     Dates: start: 20070606, end: 20071208
  2. GLYBURIDE [Concomitant]
     Route: 048
  3. BISOPROLOL FUMARATE AND HYDROCHLOROTHIAZIDE [Suspect]
     Indication: HYPERTENSION
     Route: 048
     Dates: start: 20050101, end: 20071208
  4. ACETYLCYSTEINE AND THIAMPHENICOL [Concomitant]
     Route: 065
  5. HYDROCHLOROTHIAZIDE AND TELMISARTAN [Concomitant]
     Route: 048
  6. TIOTROPIUM BROMIDE [Concomitant]
  7. ALBUTEROL SULFATE [Concomitant]
     Indication: BRONCHITIS

REACTIONS (2)
  - ATRIOVENTRICULAR BLOCK [None]
  - DRUG INTERACTION [None]
